FAERS Safety Report 12982690 (Version 3)
Quarter: 2017Q1

REPORT INFORMATION
  Report Type: Report from Study
  Country: HU (occurrence: HU)
  Receive Date: 20161129
  Receipt Date: 20170127
  Transmission Date: 20170428
  Serious: Yes (Life-Threatening)
  Sender: FDA-Public Use
  Company Number: HU-GLAXOSMITHKLINE-HU2016174839

PATIENT
  Age: 71 Year
  Sex: Male
  Weight: 62.4 kg

DRUGS (5)
  1. LEVEMIR [Concomitant]
     Active Substance: INSULIN DETEMIR
     Indication: TYPE 2 DIABETES MELLITUS
     Dosage: 13 IU, QD
     Route: 058
     Dates: start: 20161026, end: 20161123
  2. NOVORAPID [Concomitant]
     Active Substance: INSULIN ASPART
     Dosage: 5 IU, QD
     Route: 058
     Dates: start: 20160518, end: 20161124
  3. ALBIGLUTIDE [Suspect]
     Active Substance: ALBIGLUTIDE
     Indication: TYPE 2 DIABETES MELLITUS
     Dosage: 30 MG, WE
     Route: 058
     Dates: start: 20161027
  4. NOVORAPID [Concomitant]
     Active Substance: INSULIN ASPART
     Indication: TYPE 2 DIABETES MELLITUS
     Dosage: 5 IU, QD
     Route: 058
     Dates: start: 20160518, end: 20161124
  5. NOVORAPID [Concomitant]
     Active Substance: INSULIN ASPART
     Dosage: 8 IU, QD
     Route: 058
     Dates: start: 20160518, end: 20161124

REACTIONS (1)
  - Hypoglycaemia [Recovered/Resolved]

NARRATIVE: CASE EVENT DATE: 20161123
